FAERS Safety Report 8996787 (Version 1)
Quarter: 2013Q1

REPORT INFORMATION
  Report Type: Spontaneous
  Country: US (occurrence: US)
  Receive Date: 20130104
  Receipt Date: 20130104
  Transmission Date: 20140127
  Serious: No
  Sender: FDA-Public Use
  Company Number: US-BAYER-2013-001083

PATIENT
  Age: 78 Year
  Sex: Female
  Weight: 74 kg

DRUGS (4)
  1. ALEVE CAPLET/TABLET,MIDOL EXTENDED RELIEF CAPLET [Suspect]
     Indication: ARTHRITIS
     Dosage: 2 DF, PRN
     Route: 048
     Dates: start: 201212, end: 201212
  2. ALEVE CAPLET/TABLET,MIDOL EXTENDED RELIEF CAPLET [Suspect]
     Indication: ARTHRITIS
     Dosage: 3 DF, UNK
     Dates: start: 201212
  3. LIPITOR [Concomitant]
  4. ATENOLOL [Concomitant]

REACTIONS (2)
  - Drug ineffective [None]
  - Incorrect dose administered [None]
